FAERS Safety Report 4732979-2 (Version None)
Quarter: 2005Q3

REPORT INFORMATION
  Report Type: 
  Country: None (occurrence: None)
  Receive Date: 20050803
  Receipt Date: 20050401
  Transmission Date: 20060218
  Serious: Yes (Death, Hospitalization, Other)
  Sender: FDA-Public Use
  Company Number: PHEH2005US03882

PATIENT
  Age: 78 Year
  Sex: Female

DRUGS (6)
  1. SYNTHROID [Concomitant]
     Indication: HYPOTHYROIDISM
     Dosage: 0.5 MG, QD
     Route: 048
  2. METOPROLOL [Concomitant]
     Indication: HYPERTENSION
     Dosage: 50 MG, BID
     Route: 048
  3. NORVASC [Concomitant]
     Dosage: 5 MG, QD
     Route: 048
  4. EPOGEN [Concomitant]
     Dosage: 40000 IU, QW
  5. GLEEVEC [Suspect]
     Indication: CHRONIC MYELOID LEUKAEMIA
     Dosage: 500 MG, QD
     Route: 048
     Dates: start: 20030529, end: 20030601
  6. ALLOPURINOL [Concomitant]

REACTIONS (39)
  - ABDOMINAL PAIN [None]
  - ABSCESS INTESTINAL [None]
  - ARTERIAL THROMBOSIS [None]
  - ARTHRALGIA [None]
  - BILIARY DILATATION [None]
  - BLOOD CREATININE INCREASED [None]
  - BLOOD THYROID STIMULATING HORMONE INCREASED [None]
  - BLOOD UREA INCREASED [None]
  - BRONCHITIS [None]
  - CARDIOMEGALY [None]
  - CHILLS [None]
  - CONSTIPATION [None]
  - COUGH [None]
  - DYSPNOEA EXACERBATED [None]
  - ENTEROCOCCAL INFECTION [None]
  - GANGRENE [None]
  - GASTROINTESTINAL NECROSIS [None]
  - INTESTINAL INFARCTION [None]
  - INTESTINAL RESECTION [None]
  - LYMPHADENOPATHY MEDIASTINAL [None]
  - METABOLIC ENCEPHALOPATHY [None]
  - MYALGIA [None]
  - OEDEMA PERIPHERAL [None]
  - PAIN IN EXTREMITY [None]
  - PERIPHERAL ISCHAEMIA [None]
  - PERITONEAL INFECTION [None]
  - PLATELET COUNT INCREASED [None]
  - PLEURAL EFFUSION [None]
  - PNEUMONIA ASPIRATION [None]
  - PORCELAIN GALLBLADDER [None]
  - PULMONARY OEDEMA [None]
  - RENAL FAILURE [None]
  - SKIN DISCOLOURATION [None]
  - SMALL INTESTINAL OBSTRUCTION [None]
  - SPLENOMEGALY [None]
  - URINARY TRACT INFECTION [None]
  - URINE ODOUR ABNORMAL [None]
  - VOMITING [None]
  - WHITE BLOOD CELL COUNT INCREASED [None]
